FAERS Safety Report 10096319 (Version 1)
Quarter: 2014Q2

REPORT INFORMATION
  Report Type: Spontaneous
  Country: US (occurrence: None)
  Receive Date: 20140410
  Receipt Date: 20140410
  Transmission Date: 20141212
  Serious: Yes (Other)
  Sender: FDA-Public Use
  Company Number: 2013-003433

PATIENT
  Age: 49 Year
  Sex: Female

DRUGS (1)
  1. LOESTRIN 24 FE [Suspect]
     Route: 048

REACTIONS (1)
  - Cerebrovascular accident [None]
